FAERS Safety Report 5953414-2 (Version None)
Quarter: 2008Q4

REPORT INFORMATION
  Report Type: 
  Country: None (occurrence: None)
  Receive Date: 20081114
  Receipt Date: 20081103
  Transmission Date: 20090506
  Serious: Yes (Disabling)
  Sender: FDA-Public Use
  Company Number: US-MERCK-0805USA00690

PATIENT
  Age: 52 Year
  Sex: Female
  Weight: 66 kg

DRUGS (10)
  1. FOSAMAX [Suspect]
     Indication: OSTEOPENIA
     Route: 048
     Dates: start: 20010201, end: 20020101
  2. FOSAMAX [Suspect]
     Route: 048
     Dates: start: 20010801, end: 20010821
  3. FOSAMAX [Suspect]
     Indication: OSTEOPOROSIS
     Route: 048
     Dates: start: 20010201, end: 20020101
  4. FOSAMAX [Suspect]
     Route: 048
     Dates: start: 20010801, end: 20010821
  5. INNOPRAN [Concomitant]
     Indication: PALPITATIONS
     Route: 065
     Dates: start: 19980101
  6. INDERAL [Concomitant]
     Indication: PALPITATIONS
     Route: 065
     Dates: start: 19980101
  7. PREVACID [Concomitant]
     Indication: GASTROOESOPHAGEAL REFLUX DISEASE
     Route: 065
     Dates: start: 19980101
  8. CORTICOSTEROIDS (UNSPECIFIED) [Concomitant]
     Route: 065
     Dates: start: 20010101, end: 20060101
  9. BONIVA [Suspect]
     Indication: OSTEOPENIA
     Route: 065
     Dates: start: 20050831, end: 20070202
  10. VIOXX [Suspect]
     Route: 048
     Dates: end: 20010801

REACTIONS (30)
  - ANIMAL BITE [None]
  - ANXIETY [None]
  - ATROPHIC VULVOVAGINITIS [None]
  - BARRETT'S OESOPHAGUS [None]
  - BRONCHITIS [None]
  - CELLULITIS [None]
  - CHEST DISCOMFORT [None]
  - COUGH [None]
  - DIZZINESS [None]
  - DRUG HYPERSENSITIVITY [None]
  - DRUG INTOLERANCE [None]
  - FAILURE OF IMPLANT [None]
  - FATIGUE [None]
  - GASTRIC PH DECREASED [None]
  - GASTRITIS [None]
  - GASTROOESOPHAGEAL REFLUX DISEASE [None]
  - IMPAIRED HEALING [None]
  - JAW DISORDER [None]
  - MELANOCYTIC NAEVUS [None]
  - MIGRAINE [None]
  - MITRAL VALVE PROLAPSE [None]
  - MUSCLE SPASMS [None]
  - OSTEONECROSIS [None]
  - PAIN IN JAW [None]
  - PALPITATIONS [None]
  - PERIODONTAL DISEASE [None]
  - STOMATITIS [None]
  - TEMPOROMANDIBULAR JOINT SYNDROME [None]
  - TOOTHACHE [None]
  - VENTRICULAR EXTRASYSTOLES [None]
